APPROVED DRUG PRODUCT: CHLORAPREP TRIPLE SWABSTICK
Active Ingredient: CHLORHEXIDINE GLUCONATE; ISOPROPYL ALCOHOL
Strength: 2%;70% (5.25ML)
Dosage Form/Route: SWAB;TOPICAL
Application: N021555 | Product #003
Applicant: BECTON DICKINSON AND CO
Approved: Jun 10, 2009 | RLD: Yes | RS: Yes | Type: OTC